FAERS Safety Report 19184890 (Version 1)
Quarter: 2021Q2

REPORT INFORMATION
  Report Type: Spontaneous
  Country: US (occurrence: US)
  Receive Date: 20210427
  Receipt Date: 20210427
  Transmission Date: 20210717
  Serious: Yes (Death)
  Sender: FDA-Public Use
  Company Number: US-FRESENIUS KABI-FK202104255

PATIENT
  Age: 78 Year
  Sex: Female

DRUGS (3)
  1. POLYMYXIN B (MANUFACTURER UNKNOWN) [Suspect]
     Active Substance: POLYMYXIN B
     Indication: PSEUDOMONAS INFECTION
     Route: 042
  2. CEFEPIME [Concomitant]
     Active Substance: CEFEPIME HYDROCHLORIDE
     Indication: PSEUDOMONAS INFECTION
     Route: 065
  3. TAZOBACTAM/CEFTOLOZANE [Concomitant]
     Indication: PSEUDOMONAS INFECTION
     Route: 065

REACTIONS (1)
  - Cardio-respiratory arrest [Fatal]
